FAERS Safety Report 9003810 (Version 1)
Quarter: 2013Q1

REPORT INFORMATION
  Report Type: Spontaneous
  Country: US (occurrence: US)
  Receive Date: 20130108
  Receipt Date: 20130108
  Transmission Date: 20140127
  Serious: No
  Sender: FDA-Public Use
  Company Number: US-GLAXOSMITHKLINE-A0984278A

PATIENT
  Age: 69 Year
  Sex: Male

DRUGS (6)
  1. LOVAZA [Suspect]
     Indication: BLOOD CHOLESTEROL
     Dates: start: 201110
  2. ASPIRIN [Concomitant]
  3. CRESTOR [Concomitant]
  4. LISINOPRIL [Concomitant]
  5. ZETIA [Concomitant]
  6. NIASPAN [Concomitant]

REACTIONS (2)
  - Overdose [Unknown]
  - Therapeutic response unexpected [Unknown]
